FAERS Safety Report 6746690-X (Version None)
Quarter: 2010Q2

REPORT INFORMATION
  Report Type: 
  Country: None (occurrence: None)
  Receive Date: 20100528
  Receipt Date: 20100520
  Transmission Date: 20101027
  Serious: Yes (Life-Threatening, Hospitalization, Other)
  Sender: FDA-Public Use
  Company Number: US-PFIZER INC-2010063897

PATIENT
  Sex: Male

DRUGS (2)
  1. CELEBREX [Suspect]
     Dosage: UNK
     Route: 048
  2. VICODIN [Concomitant]
     Indication: SURGERY
     Dosage: UNK

REACTIONS (2)
  - ANAPHYLACTIC SHOCK [None]
  - SWELLING [None]
